FAERS Safety Report 10206261 (Version 1)
Quarter: 2014Q2

REPORT INFORMATION
  Report Type: Spontaneous
  Country: BR (occurrence: BR)
  Receive Date: 20140530
  Receipt Date: 20140530
  Transmission Date: 20141212
  Serious: Yes (Hospitalization, Other)
  Sender: FDA-Public Use
  Company Number: BR-JNJFOC-20140513914

PATIENT
  Age: 78 Year
  Sex: Female

DRUGS (14)
  1. XARELTO [Suspect]
     Indication: THROMBOSIS PROPHYLAXIS
     Dosage: HALF TABLET 20 MG
     Route: 048
  2. XARELTO [Suspect]
     Indication: THROMBOSIS PROPHYLAXIS
     Route: 048
     Dates: start: 201206
  3. XARELTO [Suspect]
     Indication: THROMBOSIS
     Dosage: HALF TABLET 20 MG
     Route: 048
  4. XARELTO [Suspect]
     Indication: THROMBOSIS
     Route: 048
     Dates: start: 201206
  5. LYRICA [Concomitant]
     Indication: PAIN
     Route: 048
     Dates: start: 2012
  6. BUDESONIDE [Concomitant]
     Indication: BRONCHIECTASIS
     Route: 065
     Dates: start: 2012
  7. ULTRACET [Concomitant]
     Indication: PAIN
     Route: 065
     Dates: start: 201402
  8. CELEBRA [Concomitant]
     Indication: PAIN
     Route: 065
  9. CYMBALTA [Concomitant]
     Indication: PRODUCT USED FOR UNKNOWN INDICATION
     Route: 048
     Dates: start: 2012
  10. LOSARTAN [Concomitant]
     Indication: HYPERTENSION
     Route: 048
     Dates: start: 2012
  11. CONCOR [Concomitant]
     Indication: CARDIAC DISORDER
     Route: 048
     Dates: start: 2012
  12. HYDROCHLOROTHIAZIDE [Concomitant]
     Indication: POLYURIA
     Route: 048
     Dates: start: 2012
  13. SYNTHROID [Concomitant]
     Indication: HYPOTHYROIDISM
     Route: 048
  14. RIVOTRIL [Concomitant]
     Indication: SLEEP DISORDER THERAPY
     Route: 048

REACTIONS (6)
  - Thrombosis [Not Recovered/Not Resolved]
  - Spinal pain [Recovering/Resolving]
  - Pulmonary embolism [Recovered/Resolved]
  - Pain in extremity [Not Recovered/Not Resolved]
  - Wrong technique in drug usage process [Unknown]
  - Incorrect dose administered [Unknown]
